FAERS Safety Report 14723123 (Version 2)
Quarter: 2018Q2

REPORT INFORMATION
  Report Type: Spontaneous
  Country: US (occurrence: US)
  Receive Date: 20180405
  Receipt Date: 20180405
  Transmission Date: 20180711
  Serious: No
  Sender: FDA-Public Use
  Company Number: US-ALKERMES INC.-ALK-2018-001783

PATIENT
  Age: 48 Year
  Sex: Female
  Weight: 90.7 kg

DRUGS (7)
  1. ARISTADA [Suspect]
     Active Substance: ARIPIPRAZOLE LAUROXIL
     Indication: DEPRESSION
  2. ABILIFY [Concomitant]
     Active Substance: ARIPIPRAZOLE
     Indication: PRODUCT USED FOR UNKNOWN INDICATION
     Dosage: 20 MG, UNK
     Route: 065
  3. QUETIAPINE FUMARATE. [Concomitant]
     Active Substance: QUETIAPINE FUMARATE
     Indication: PRODUCT USED FOR UNKNOWN INDICATION
     Dosage: 300 MG, UNK
     Route: 065
  4. ARISTADA [Suspect]
     Active Substance: ARIPIPRAZOLE LAUROXIL
     Indication: SCHIZOPHRENIA
     Dosage: 662 MG, QMO
     Route: 030
     Dates: start: 20171109
  5. ARISTADA [Suspect]
     Active Substance: ARIPIPRAZOLE LAUROXIL
     Indication: PANIC ATTACK
  6. BENZTROPINE. [Concomitant]
     Active Substance: BENZTROPINE
     Indication: PRODUCT USED FOR UNKNOWN INDICATION
     Dosage: 5 MG, UNK
     Route: 065
  7. ARISTADA [Suspect]
     Active Substance: ARIPIPRAZOLE LAUROXIL
     Indication: ANXIETY

REACTIONS (1)
  - Weight increased [Not Recovered/Not Resolved]

NARRATIVE: CASE EVENT DATE: 20171109
